FAERS Safety Report 7988912-3 (Version None)
Quarter: 2011Q4

REPORT INFORMATION
  Report Type: 
  Country: None (occurrence: None)
  Receive Date: 20111007
  Receipt Date: 20110831
  Transmission Date: 20120403
  Serious: No
  Sender: FDA-Public Use
  Company Number: 2011HGS-002426

PATIENT
  Age: 51 Year
  Sex: Female
  Weight: 123 kg

DRUGS (23)
  1. CARAFATE [Concomitant]
  2. SUMATRIPTAN SUCCINATE (IMITREX) [Concomitant]
  3. TOPROL-XL [Concomitant]
  4. METOPROLOL TARTRATE [Concomitant]
  5. PREMARIN [Concomitant]
  6. PROVENTIL [Concomitant]
  7. MAXALT [Concomitant]
  8. ATIVAN [Concomitant]
  9. BUMEX [Concomitant]
  10. GABAPENTIN [Concomitant]
  11. PLAQUENIL [Concomitant]
  12. ZOLOFT [Concomitant]
  13. BENLYSTA [Suspect]
     Indication: SYSTEMIC LUPUS ERYTHEMATOSUS
     Dosage: 10 MG/KG, 1 IN 4 WK, INTRAVENOUS DRIP
     Route: 041
     Dates: start: 20110711, end: 20110711
  14. LYRICA [Concomitant]
  15. NORVASC [Concomitant]
  16. LORTAB (VICODIN) (PARACETAMOL, HYDROCODONE BITARTRATE) [Concomitant]
  17. OMEPRAZOLE [Concomitant]
  18. GLUCOPHAGE [Concomitant]
  19. PREDNISONE [Concomitant]
  20. EPIPEN [Concomitant]
  21. OXYCONTIN [Concomitant]
  22. BUSPAR DIVIDOSE (BUSPIRONE HYDROCHLORIDE) [Concomitant]
  23. PROMETHAZINE [Concomitant]

REACTIONS (2)
  - FLUSHING [None]
  - PRURITUS [None]
